FAERS Safety Report 9242666 (Version 1)
Quarter: 2013Q2

REPORT INFORMATION
  Report Type: Spontaneous
  Country: JP (occurrence: JP)
  Receive Date: 20130419
  Receipt Date: 20130419
  Transmission Date: 20140414
  Serious: Yes (Other)
  Sender: FDA-Public Use
  Company Number: JP-GLAXOSMITHKLINE-B0884577A

PATIENT
  Age: 73 Year
  Sex: Male

DRUGS (1)
  1. DERMOVATE [Suspect]
     Indication: NAIL DISORDER
     Route: 061

REACTIONS (1)
  - Haemorrhage [Unknown]
